FAERS Safety Report 11595697 (Version 1)
Quarter: 2015Q4

REPORT INFORMATION
  Report Type: Spontaneous
  Country: BE (occurrence: None)
  Receive Date: 20151002
  Receipt Date: 20151002
  Transmission Date: 20160304
  Serious: Yes (Hospitalization)
  Sender: FDA-Public Use
  Company Number: 2015PL000203

PATIENT
  Age: 77 Year
  Sex: Female

DRUGS (1)
  1. ALLOPURINOL (ALLOPURINOL) TABLET [Suspect]
     Active Substance: ALLOPURINOL
     Indication: PRODUCT USED FOR UNKNOWN INDICATION

REACTIONS (10)
  - Rash [None]
  - Pruritus [None]
  - Pulmonary congestion [None]
  - Rash erythematous [None]
  - Documented hypersensitivity to administered product [None]
  - Mitral valve incompetence [None]
  - Hypotension [None]
  - Aortic valve incompetence [None]
  - Accidental exposure to product [None]
  - Stress cardiomyopathy [None]
